FAERS Safety Report 25674783 (Version 2)
Quarter: 2025Q3

REPORT INFORMATION
  Report Type: Report from Study
  Country: EU (occurrence: EU)
  Receive Date: 20250813
  Receipt Date: 20250814
  Transmission Date: 20251020
  Serious: No
  Sender: KARYOPHARM THERAPEUTICS
  Company Number: EU-KARYOPHARM-2025KPT100607

PATIENT
  Age: 77 Year
  Sex: Female

DRUGS (10)
  1. SELINEXOR [Suspect]
     Active Substance: SELINEXOR
     Indication: Endometrial cancer
     Route: 048
     Dates: start: 20201008
  2. ONDANSETRON [Concomitant]
     Active Substance: ONDANSETRON
     Indication: Prophylaxis
     Dates: start: 20211201
  3. OXAZEPAM [Concomitant]
     Active Substance: OXAZEPAM
     Indication: Insomnia
     Dates: start: 20230223
  4. OMEPRAZOLE [Concomitant]
     Active Substance: OMEPRAZOLE
     Dates: start: 20230419
  5. MOTILIUM [Concomitant]
     Active Substance: DOMPERIDONE
     Indication: Abdominal discomfort
     Dates: start: 20230419
  6. STEOVIT FORTE [Concomitant]
     Indication: Osteoporosis
     Dates: start: 20231002
  7. CANNABIS SATIVA SUBSP. INDICA TOP [Concomitant]
     Active Substance: CANNABIS SATIVA SUBSP. INDICA TOP
     Dates: start: 20241205
  8. CANNABIS SATIVA SUBSP. INDICA TOP [Concomitant]
     Active Substance: CANNABIS SATIVA SUBSP. INDICA TOP
  9. IBUPROFEN [Concomitant]
     Active Substance: IBUPROFEN
     Dates: start: 202505, end: 202506
  10. DICLOFENAC [Concomitant]
     Active Substance: DICLOFENAC
     Dates: start: 202505, end: 202506

REACTIONS (3)
  - Dyspnoea exertional [Not Recovered/Not Resolved]
  - Nervousness [Not Recovered/Not Resolved]
  - Syncope [Recovered/Resolved]

NARRATIVE: CASE EVENT DATE: 20250701
